FAERS Safety Report 8085543-4 (Version None)
Quarter: 2012Q1

REPORT INFORMATION
  Report Type: 
  Country: None (occurrence: None)
  Receive Date: 20120128
  Receipt Date: 20110420
  Transmission Date: 20120608
  Serious: Yes (Hospitalization, Other)
  Sender: FDA-Public Use
  Company Number: US-ABBOTT-11P-163-0713863-00

PATIENT
  Sex: Female
  Weight: 112.59 kg

DRUGS (2)
  1. HUMIRA [Suspect]
     Indication: PSORIASIS
     Dates: start: 20110311, end: 20110311
  2. HUMIRA [Suspect]
     Dosage: EVERY OTHER WEEK
     Dates: start: 20110301

REACTIONS (1)
  - HYPERTENSION [None]
